FAERS Safety Report 15332641 (Version 2)
Quarter: 2018Q3

REPORT INFORMATION
  Report Type: Spontaneous
  Country: TW (occurrence: TW)
  Receive Date: 20180830
  Receipt Date: 20180926
  Transmission Date: 20181010
  Serious: Yes (Hospitalization, Other)
  Sender: FDA-Public Use
  Company Number: TW-ALVOGEN-2018-ALVOGEN-097227

PATIENT
  Age: 87 Year
  Sex: Female
  Weight: 68.5 kg

DRUGS (12)
  1. PROPOFOL. [Interacting]
     Active Substance: PROPOFOL
     Indication: GENERAL ANAESTHESIA
     Dosage: IN TOTAL
     Route: 042
  2. OXYGEN. [Concomitant]
     Active Substance: OXYGEN
     Indication: PRODUCT USED FOR UNKNOWN INDICATION
  3. ALPRAZOLAM. [Interacting]
     Active Substance: ALPRAZOLAM
     Indication: PANIC DISORDER
  4. DESFLURANE. [Interacting]
     Active Substance: DESFLURANE
     Indication: MAINTENANCE OF ANAESTHESIA
     Dosage: ()
  5. PROPRANOLOL [Concomitant]
     Active Substance: PROPRANOLOL HYDROCHLORIDE
     Indication: HYPERTENSION
     Dosage: HYPERTENSION WAS UNDER CONTROL WITH PROPRANOLOL 10 MG BID TREATMENT FOR 10 YEARS
  6. CISATRACURIUM. [Interacting]
     Active Substance: CISATRACURIUM
     Indication: ENDOTRACHEAL INTUBATION
     Dosage: IN TOTAL
     Route: 042
  7. LIDOCAINE. [Interacting]
     Active Substance: LIDOCAINE
     Indication: GENERAL ANAESTHESIA
     Route: 042
  8. ESTAZOLAM. [Interacting]
     Active Substance: ESTAZOLAM
     Indication: MAJOR DEPRESSION
  9. QUETIAPINE FUMARATE. [Interacting]
     Active Substance: QUETIAPINE FUMARATE
     Indication: MAJOR DEPRESSION
     Dosage: HS
  10. SEVOFLURANE. [Interacting]
     Active Substance: SEVOFLURANE
     Indication: MAINTENANCE OF ANAESTHESIA
     Dosage: ()
  11. IMIPRAMINE HYDROCHLORIDE. [Interacting]
     Active Substance: IMIPRAMINE HYDROCHLORIDE
     Indication: PANIC DISORDER
     Dosage: HS, LONG TERM TREATMENT
  12. FENTANYL. [Suspect]
     Active Substance: FENTANYL
     Indication: GENERAL ANAESTHESIA
     Dosage: IN TOTAL
     Route: 042

REACTIONS (3)
  - Drug interaction [Recovered/Resolved]
  - Procedural hypotension [Recovered/Resolved]
  - Bradycardia [Recovered/Resolved]
